FAERS Safety Report 9692282 (Version 1)
Quarter: 2013Q4

REPORT INFORMATION
  Report Type: Spontaneous
  Country: BR (occurrence: BR)
  Receive Date: 20131118
  Receipt Date: 20131118
  Transmission Date: 20140711
  Serious: Yes (Hospitalization, Other)
  Sender: FDA-Public Use
  Company Number: BR-AMGEN-BRASP2013081020

PATIENT
  Age: 66 Year
  Sex: Female

DRUGS (4)
  1. ENBREL [Suspect]
     Indication: RHEUMATOID ARTHRITIS
     Dosage: 50 MG, ONCE WEEKLY
     Route: 058
     Dates: start: 20131017
  2. PURAN T4 [Concomitant]
     Indication: THYROID DISORDER
     Dosage: UNK
  3. INSULINA NPH [Concomitant]
     Dosage: 6 IU
  4. INSULINA [Concomitant]
     Dosage: 50 IU

REACTIONS (6)
  - Respiratory disorder [Unknown]
  - Dementia [Unknown]
  - Confusional state [Unknown]
  - Neuropathy peripheral [Unknown]
  - Urinary tract infection [Unknown]
  - Pneumonia [Unknown]
